FAERS Safety Report 19094893 (Version 1)
Quarter: 2021Q2

REPORT INFORMATION
  Report Type: Other
  Country: FR (occurrence: FR)
  Receive Date: 20210405
  Receipt Date: 20210405
  Transmission Date: 20210717
  Serious: Yes (Other)
  Sender: FDA-Public Use
  Company Number: FR-VALIDUS PHARMACEUTICALS LLC-FR-2021VAL000591

PATIENT
  Age: 79 Year
  Sex: Male
  Weight: 115 kg

DRUGS (2)
  1. FLAGYL [Suspect]
     Active Substance: METRONIDAZOLE\METRONIDAZOLE HYDROCHLORIDE
     Indication: ESCHERICHIA BACTERAEMIA
     Dosage: 1500 MG, QD
     Route: 048
     Dates: start: 20190607, end: 20190613
  2. CEFOTAXIME SODIUM [Suspect]
     Active Substance: CEFOTAXIME SODIUM
     Indication: ESCHERICHIA BACTERAEMIA
     Dosage: 6 G, QD
     Route: 042
     Dates: start: 20190607, end: 20190613

REACTIONS (2)
  - Cholestasis [Recovering/Resolving]
  - Hepatic cytolysis [Recovered/Resolved]

NARRATIVE: CASE EVENT DATE: 20190611
